FAERS Safety Report 10744581 (Version 1)
Quarter: 2015Q1

REPORT INFORMATION
  Report Type: Spontaneous
  Country: US (occurrence: None)
  Receive Date: 20150126
  Receipt Date: 20150126
  Transmission Date: 20150721
  Serious: Yes (Hospitalization)
  Sender: FDA-Public Use
  Company Number: None

PATIENT
  Age: 5 Year
  Sex: Male
  Weight: 22 kg

DRUGS (3)
  1. VINCRISTINE SULFATE. [Suspect]
     Active Substance: VINCRISTINE SULFATE
     Dates: end: 20150120
  2. DEXAMETHASONE. [Suspect]
     Active Substance: DEXAMETHASONE
     Dates: end: 20150121
  3. CYTARABINE. [Suspect]
     Active Substance: CYTARABINE
     Dates: end: 20150120

REACTIONS (8)
  - Anuria [None]
  - Nephrolithiasis [None]
  - Blood urea increased [None]
  - Blood phosphorus increased [None]
  - Haematuria [None]
  - Blood creatinine increased [None]
  - Blood uric acid increased [None]
  - Hydronephrosis [None]

NARRATIVE: CASE EVENT DATE: 20150121
